FAERS Safety Report 6187281-1 (Version None)
Quarter: 2009Q2

REPORT INFORMATION
  Report Type: 
  Country: None (occurrence: None)
  Receive Date: 20090512
  Receipt Date: 20090507
  Transmission Date: 20091009
  Serious: Yes (Other)
  Sender: FDA-Public Use
  Company Number: FR-WYE-G03644409

PATIENT
  Age: 33 Year
  Sex: Male

DRUGS (2)
  1. TORISEL [Suspect]
     Indication: RENAL CANCER METASTATIC
     Route: 042
     Dates: start: 20080314, end: 20080901
  2. TORISEL [Suspect]
     Route: 042
     Dates: start: 20080929, end: 20090309

REACTIONS (5)
  - COUGH [None]
  - DISEASE PROGRESSION [None]
  - DYSPNOEA [None]
  - HEPATIC NECROSIS [None]
  - LYMPHOCYTIC INFILTRATION [None]
